FAERS Safety Report 17615420 (Version 1)
Quarter: 2020Q2

REPORT INFORMATION
  Report Type: Spontaneous
  Country: CN (occurrence: CN)
  Receive Date: 20200402
  Receipt Date: 20200402
  Transmission Date: 20200713
  Serious: Yes (Hospitalization, Other)
  Sender: FDA-Public Use
  Company Number: CN-PFIZER INC-2020135901

PATIENT
  Age: 3 Year
  Sex: Male
  Weight: 14 kg

DRUGS (1)
  1. ZITHROMAX [Suspect]
     Active Substance: AZITHROMYCIN DIHYDRATE
     Indication: PNEUMONIA
     Dosage: 0.14 G, 1X/DAY
     Route: 041
     Dates: start: 20191127, end: 20191127

REACTIONS (8)
  - Swelling [Recovered/Resolved]
  - Off label use [Unknown]
  - Pruritus [Unknown]
  - Heart rate increased [Unknown]
  - Product use issue [Unknown]
  - Rash [Recovered/Resolved]
  - Erythema [Recovered/Resolved]
  - Body temperature increased [Unknown]

NARRATIVE: CASE EVENT DATE: 20191127
